FAERS Safety Report 25745048 (Version 2)
Quarter: 2025Q3

REPORT INFORMATION
  Report Type: Spontaneous
  Country: CO (occurrence: CO)
  Receive Date: 20250901
  Receipt Date: 20250915
  Transmission Date: 20251020
  Serious: Yes (Life-Threatening, Hospitalization, Other)
  Sender: PHARMOBEDIENT CONSULTING, LLC
  Company Number: CO-Pharmobedient-000132

PATIENT
  Age: 44 Year
  Sex: Female
  Weight: 0 kg

DRUGS (2)
  1. CYTARABINE [Suspect]
     Active Substance: CYTARABINE
     Indication: Acute myeloid leukaemia
  2. IDARUBICIN [Suspect]
     Active Substance: IDARUBICIN
     Indication: Acute myeloid leukaemia

REACTIONS (6)
  - Melaena [Recovered/Resolved]
  - Abnormal uterine bleeding [Recovered/Resolved]
  - Rectal haemorrhage [Recovered/Resolved]
  - Leukopenia [Unknown]
  - Anaemia [Not Recovered/Not Resolved]
  - Thrombocytopenia [Not Recovered/Not Resolved]
